FAERS Safety Report 14912128 (Version 1)
Quarter: 2018Q2

REPORT INFORMATION
  Report Type: Spontaneous
  Country: US (occurrence: US)
  Receive Date: 20180518
  Receipt Date: 20180518
  Transmission Date: 20180711
  Serious: No
  Sender: FDA-Public Use
  Company Number: US-PFIZER INC-2018203838

PATIENT
  Age: 84 Year
  Sex: Female

DRUGS (1)
  1. GABAPENTIN. [Suspect]
     Active Substance: GABAPENTIN
     Indication: PAIN
     Dosage: UNK

REACTIONS (6)
  - Product use in unapproved indication [Unknown]
  - Hallucination [Unknown]
  - Spinal column stenosis [Unknown]
  - Screaming [Unknown]
  - Movement disorder [Unknown]
  - Intervertebral disc protrusion [Unknown]
